FAERS Safety Report 5176778-9 (Version None)
Quarter: 2006Q4

REPORT INFORMATION
  Report Type: 
  Country: None (occurrence: None)
  Receive Date: 20061218
  Receipt Date: 20061024
  Transmission Date: 20070319
  Serious: Yes (Life-Threatening)
  Sender: FDA-Public Use
  Company Number: GBWYE320724OCT06

PATIENT
  Sex: Male
  Weight: 83 kg

DRUGS (5)
  1. ENBREL [Suspect]
     Indication: RHEUMATOID ARTHRITIS
     Route: 058
     Dates: start: 20061009, end: 20061023
  2. ANADIN [Concomitant]
     Dosage: 2 -3 PER DAY
     Route: 048
  3. KAPAKE [Concomitant]
     Dosage: 4 - 5  PER DAY
     Route: 048
  4. METHOTREXATE [Concomitant]
     Indication: RHEUMATOID ARTHRITIS
     Route: 048
  5. DOLOPHINE HYDROCHLORIDE [Concomitant]
     Indication: RHEUMATOID ARTHRITIS
     Route: 048

REACTIONS (3)
  - HYPOAESTHESIA ORAL [None]
  - ORAL DISCOMFORT [None]
  - PRURITUS GENERALISED [None]
